FAERS Safety Report 24401708 (Version 2)
Quarter: 2024Q4

REPORT INFORMATION
  Report Type: Spontaneous
  Country: US (occurrence: US)
  Receive Date: 20241007
  Receipt Date: 20241011
  Transmission Date: 20250114
  Serious: No
  Sender: ROCHE
  Company Number: US-ROCHE-10000097942

PATIENT
  Age: 40 Year
  Sex: Male

DRUGS (4)
  1. XOLAIR [Suspect]
     Active Substance: OMALIZUMAB
     Indication: Nasal polyps
     Route: 065
  2. XOLAIR [Suspect]
     Active Substance: OMALIZUMAB
     Indication: Asthma
  3. DUPIXENT [Interacting]
     Active Substance: DUPILUMAB
     Indication: Nasal polyps
     Route: 065
  4. DUPIXENT [Interacting]
     Active Substance: DUPILUMAB
     Indication: Asthma

REACTIONS (1)
  - Drug interaction [Unknown]
